FAERS Safety Report 5701560-0 (Version None)
Quarter: 2008Q2

REPORT INFORMATION
  Report Type: 
  Country: None (occurrence: None)
  Receive Date: 20080408
  Receipt Date: 20080330
  Transmission Date: 20081010
  Serious: Yes (Other)
  Sender: FDA-Public Use
  Company Number: CHPA2008US05764

PATIENT
  Age: 18 Year
  Sex: Female

DRUGS (1)
  1. EXCEDRIN PM (NCH)(ACETAMINOPHEN (PARACETAMOL), DIPHENHYDRAMINE HYDROCH [Suspect]
     Dosage: 20 DF, ONCE/SINGLE, ORAL
     Route: 048
     Dates: start: 20080328, end: 20080328

REACTIONS (2)
  - OVERDOSE [None]
  - VOMITING [None]
